FAERS Safety Report 5705669-7 (Version None)
Quarter: 2008Q2

REPORT INFORMATION
  Report Type: 
  Country: None (occurrence: None)
  Receive Date: 20080415
  Receipt Date: 20080404
  Transmission Date: 20081010
  Serious: Yes (Death)
  Sender: FDA-Public Use
  Company Number: US-JNJFOC-20080401851

PATIENT
  Sex: Female
  Weight: 48.08 kg

DRUGS (2)
  1. FENTANYL TRANSDERMAL SYSTEM [Suspect]
     Indication: PAIN
     Route: 062
  2. VALIUM [Concomitant]
     Route: 048

REACTIONS (4)
  - ACCIDENTAL EXPOSURE [None]
  - HYPOAESTHESIA [None]
  - MOBILITY DECREASED [None]
  - OVERDOSE [None]
